FAERS Safety Report 6922221-6 (Version None)
Quarter: 2010Q3

REPORT INFORMATION
  Report Type: 
  Country: None (occurrence: None)
  Receive Date: 20100813
  Receipt Date: 20100729
  Transmission Date: 20110219
  Serious: Yes (Other)
  Sender: FDA-Public Use
  Company Number: BE-RANBAXY-2010RR-36577

PATIENT
  Age: 59 Year
  Sex: Female

DRUGS (4)
  1. RANITIDINE [Suspect]
  2. MYOLASTAN [Suspect]
  3. STILNOCT [Suspect]
  4. CYCLOHEXYLTHIOPHTALIMIDE [Suspect]

REACTIONS (1)
  - DERMATITIS CONTACT [None]
